FAERS Safety Report 8155674-9 (Version None)
Quarter: 2012Q1

REPORT INFORMATION
  Report Type: 
  Country: None (occurrence: None)
  Receive Date: 20120222
  Receipt Date: 20120216
  Transmission Date: 20120608
  Serious: No
  Sender: FDA-Public Use
  Company Number: US-PFIZER INC-2012042665

PATIENT
  Sex: Female
  Weight: 129 kg

DRUGS (12)
  1. KEFLEX [Suspect]
     Dosage: UNK
  2. BIAXIN [Suspect]
     Dosage: UNK
  3. CHLORPHENIRAMINE/MEPYRAMINE/PHENYLEPHRINE [Concomitant]
     Dosage: UNK
  4. MACROBID [Suspect]
     Dosage: UNK
  5. CIPROFLOXACIN [Suspect]
     Dosage: UNK
  6. NEXIUM [Concomitant]
     Indication: GASTROOESOPHAGEAL REFLUX DISEASE
     Dosage: 40 MG, DAILY
  7. OSTEO BI-FLEX [Concomitant]
     Indication: ARTHROPATHY
     Dosage: UNK
  8. PENICILLIN [Suspect]
     Dosage: UNK
  9. NEXIUM [Concomitant]
     Indication: GASTRITIS
  10. SIMVASTATIN [Concomitant]
     Dosage: 10 MG, DAILY
  11. METFORMIN [Concomitant]
     Indication: DIABETES MELLITUS
     Dosage: 500 MG, 2X/DAY
  12. SYNTHROID [Concomitant]
     Indication: THYROID DISORDER
     Dosage: 0.075 MG, DAILY

REACTIONS (1)
  - HYPERSENSITIVITY [None]
